FAERS Safety Report 23715835 (Version 1)
Quarter: 2024Q2

REPORT INFORMATION
  Report Type: Spontaneous
  Country: GB (occurrence: GB)
  Receive Date: 20240408
  Receipt Date: 20240408
  Transmission Date: 20240715
  Serious: No
  Sender: FDA-Public Use
  Company Number: None

PATIENT
  Age: 61 Year
  Sex: Female
  Weight: 82 kg

DRUGS (6)
  1. IBUPROFEN [Suspect]
     Active Substance: IBUPROFEN
     Indication: Product used for unknown indication
     Dosage: UNK
     Route: 065
     Dates: start: 20240208
  2. BETAMETHASONE SODIUM PHOSPHATE [Concomitant]
     Active Substance: BETAMETHASONE SODIUM PHOSPHATE
     Indication: Product used for unknown indication
     Dosage: UNK INSTIL 2 OR 3 DROPS INTO EACH NOSTRIL TWO OR TH
     Route: 045
     Dates: start: 20231228, end: 20240104
  3. CLARITHROMYCIN [Concomitant]
     Active Substance: CLARITHROMYCIN
     Indication: Product used for unknown indication
     Dosage: UNK, BID (TAKE ONE EVERY 12 HRS )
     Route: 065
     Dates: start: 20231229, end: 20240105
  4. COCODAMOL [Concomitant]
     Active Substance: ACETAMINOPHEN\CODEINE PHOSPHATE
     Indication: Product used for unknown indication
     Dosage: UNK, PRN (TAKE 1 OR 2 UP TO 4 TIMES/DAY AS NEEDED)
     Route: 065
     Dates: start: 20240208
  5. HYDROCORTISONE [Concomitant]
     Active Substance: HYDROCORTISONE
     Indication: Product used for unknown indication
     Dosage: UNK, BID (APPLY TWICE DAILY)
     Route: 065
     Dates: start: 20231228, end: 20231229
  6. OTOMIZE [Concomitant]
     Indication: Product used for unknown indication
     Dosage: UNK APPLY 1 METERED DOSE SPRAY (60MG) INTO EACH AFF
     Route: 065
     Dates: start: 20231227, end: 20240103

REACTIONS (1)
  - Swollen tongue [Recovered/Resolved]

NARRATIVE: CASE EVENT DATE: 20240208
